FAERS Safety Report 8968993 (Version 1)
Quarter: 2012Q4

REPORT INFORMATION
  Report Type: 
  Country: US (occurrence: US)
  Receive Date: 20121218
  Receipt Date: 20121218
  Transmission Date: 20130627
  Serious: No
  Sender: FDA-Public Use
  Company Number: US-BRISTOL-MYERS SQUIBB COMPANY-16342263

PATIENT
  Age: 38 Year
  Sex: Female

DRUGS (9)
  1. ABILIFY [Suspect]
  2. WELLBUTRIN [Concomitant]
  3. TOPAMAX [Concomitant]
  4. NEXIUM [Concomitant]
  5. CITALOPRAM [Concomitant]
  6. SYNTHROID [Concomitant]
  7. NAPROSYN [Concomitant]
  8. VICODIN [Concomitant]
  9. PROMETHAZINE [Concomitant]

REACTIONS (4)
  - Swollen tongue [Recovering/Resolving]
  - Tongue ulceration [Recovering/Resolving]
  - Speech disorder [Recovering/Resolving]
  - Toothache [Recovering/Resolving]
